FAERS Safety Report 4323308-7 (Version None)
Quarter: 2004Q1

REPORT INFORMATION
  Report Type: 
  Country: None (occurrence: None)
  Receive Date: 20040323
  Receipt Date: 20040323
  Transmission Date: 20041129
  Serious: Yes (Other)
  Sender: FDA-Public Use
  Company Number: None

PATIENT
  Age: 53 Year
  Sex: Male
  Weight: 104.8 kg

DRUGS (7)
  1. DEMEROL [Suspect]
     Dosage: 50 MG, ONCE, IV
     Route: 042
     Dates: start: 20031021, end: 20031021
  2. LISINOPRIL [Concomitant]
  3. COLON ELECTROLYTE LAVAGE [Concomitant]
  4. METOCLOPRAMIDE HCL [Concomitant]
  5. SIMVASTATIN [Concomitant]
  6. HYDROCHLOROTHIAZIDE [Concomitant]
  7. MIDAZOLAM HCL [Concomitant]

REACTIONS (1)
  - URTICARIA [None]
